FAERS Safety Report 4329754-X (Version None)
Quarter: 2004Q2

REPORT INFORMATION
  Report Type: 
  Country: None (occurrence: None)
  Receive Date: 20040401
  Receipt Date: 20040316
  Transmission Date: 20050107
  Serious: Yes (Hospitalization)
  Sender: FDA-Public Use
  Company Number: BE-GLAXOSMITHKLINE-B0327052A

PATIENT
  Age: 80 Year

DRUGS (2)
  1. PAROXETINE HCL [Suspect]
  2. DIURETICS [Concomitant]

REACTIONS (3)
  - BLOOD CHLORIDE ABNORMAL [None]
  - BLOOD POTASSIUM ABNORMAL [None]
  - BLOOD SODIUM ABNORMAL [None]
